FAERS Safety Report 13916744 (Version 1)
Quarter: 2017Q3

REPORT INFORMATION
  Report Type: Spontaneous
  Country: FR (occurrence: FR)
  Receive Date: 20170829
  Receipt Date: 20170829
  Transmission Date: 20171127
  Serious: Yes (Hospitalization)
  Sender: FDA-Public Use
  Company Number: FR-BAYER-2017-160866

PATIENT
  Age: 34 Year
  Sex: Female

DRUGS (1)
  1. MIRENA [Suspect]
     Active Substance: LEVONORGESTREL
     Indication: CONTRACEPTION
     Dosage: 20 MCG/24HR, CONT
     Route: 015
     Dates: start: 20150701, end: 20160525

REACTIONS (4)
  - Epidural anaesthesia [Recovered/Resolved]
  - Laparotomy [Recovered/Resolved]
  - Sepsis [Recovered/Resolved]
  - Beta haemolytic streptococcal infection [Recovered/Resolved]

NARRATIVE: CASE EVENT DATE: 20160523
